FAERS Safety Report 6701655-9 (Version None)
Quarter: 2010Q2

REPORT INFORMATION
  Report Type: 
  Country: None (occurrence: None)
  Receive Date: 20100429
  Receipt Date: 20100409
  Transmission Date: 20101027
  Serious: Yes (Other)
  Sender: FDA-Public Use
  Company Number: US-BAYER-201021770GPV

PATIENT

DRUGS (2)
  1. SORAFENIB [Suspect]
     Indication: THYROID CANCER
     Route: 048
  2. SORAFENIB [Suspect]
     Route: 048

REACTIONS (1)
  - AMNESIA [None]
